FAERS Safety Report 6178560-2 (Version None)
Quarter: 2009Q2

REPORT INFORMATION
  Report Type: 
  Country: None (occurrence: None)
  Receive Date: 20090430
  Receipt Date: 20090415
  Transmission Date: 20091009
  Serious: Yes (Other)
  Sender: FDA-Public Use
  Company Number: DSM-2009-00493

PATIENT
  Age: 59 Year
  Sex: Male
  Weight: 65.8 kg

DRUGS (2)
  1. OLMETEC (OLMESARTAN MEDOXOMIL) (20 MILLIGRAM, TABLET) (OLMETESARTAN ME [Suspect]
     Indication: HYPERTENSION
     Dosage: 20 MG (20 MG, 1 IN 1 D), ORAL
     Route: 048
     Dates: start: 20060318, end: 20090314
  2. XPRIM (PARACETAMOL, TRAMADOL) (PARACETAMOL, TRAMADOL) [Concomitant]

REACTIONS (4)
  - DIARRHOEA [None]
  - NO THERAPEUTIC RESPONSE [None]
  - VOMITING [None]
  - WEIGHT DECREASED [None]
